FAERS Safety Report 8347729-0 (Version None)
Quarter: 2012Q2

REPORT INFORMATION
  Report Type: 
  Country: None (occurrence: None)
  Receive Date: 20120509
  Receipt Date: 20120426
  Transmission Date: 20120825
  Serious: Yes (Hospitalization)
  Sender: FDA-Public Use
  Company Number: FR-ELI_LILLY_AND_COMPANY-FR201204008934

PATIENT
  Age: 65 Year
  Sex: Female

DRUGS (16)
  1. COTRIATEC [Concomitant]
     Dosage: 1 DF, QD
     Route: 048
  2. LYRICA [Concomitant]
     Dosage: UNK
  3. POTASSIUM CHLORIDE [Concomitant]
     Dosage: UNK
  4. ALDACTONE [Concomitant]
     Indication: HYPERTENSION
     Dosage: 25 MG, QD
     Route: 048
  5. OXAZEPAM [Concomitant]
     Dosage: UNK
  6. NEBIVOLOL HCL [Concomitant]
     Dosage: UNK
  7. CORDARONE [Concomitant]
     Indication: MYOCARDIAL ISCHAEMIA
     Dosage: 1 DF, QD
     Route: 048
  8. DIGOXIN [Concomitant]
     Dosage: UNK
     Dates: end: 20111229
  9. CYMBALTA [Suspect]
     Indication: DEPRESSION
     Dosage: 60 MG, BID
     Route: 048
  10. FERROUS SULFATE TAB [Concomitant]
     Dosage: UNK
  11. VOGALENE [Concomitant]
     Dosage: UNK
  12. ATARAX [Concomitant]
     Dosage: UNK
  13. ZOPICLONE [Concomitant]
     Dosage: UNK
  14. ACETAMINOPHEN [Concomitant]
     Dosage: UNK
  15. COUMADIN [Concomitant]
     Dosage: UNK
  16. AMIODARONE HCL [Concomitant]
     Dosage: UNK

REACTIONS (4)
  - POLYDIPSIA [None]
  - HYPONATRAEMIA [None]
  - POLLAKIURIA [None]
  - HYPOKALAEMIA [None]
